FAERS Safety Report 11513140 (Version 1)
Quarter: 2015Q3

REPORT INFORMATION
  Report Type: Spontaneous
  Country: US (occurrence: US)
  Receive Date: 20150903
  Receipt Date: 20150903
  Transmission Date: 20151125
  Serious: No
  Sender: FDA-Public Use
  Company Number: US-ELI_LILLY_AND_COMPANY-US201210002959

PATIENT
  Sex: Male

DRUGS (10)
  1. METFORMIN [Concomitant]
     Active Substance: METFORMIN HYDROCHLORIDE
  2. JANUVIA [Concomitant]
     Active Substance: SITAGLIPTIN PHOSPHATE
  3. TRAMADOL. [Concomitant]
     Active Substance: TRAMADOL
  4. LORAZEPAM. [Concomitant]
     Active Substance: LORAZEPAM
  5. CYMBALTA [Suspect]
     Active Substance: DULOXETINE HYDROCHLORIDE
     Dosage: 60 MG, QD
  6. GLIPIZIDE. [Concomitant]
     Active Substance: GLIPIZIDE
  7. LISINOPRIL. [Concomitant]
     Active Substance: LISINOPRIL
  8. LYRICA [Concomitant]
     Active Substance: PREGABALIN
  9. CYMBALTA [Suspect]
     Active Substance: DULOXETINE HYDROCHLORIDE
     Indication: DEPRESSION
     Dosage: 60 MG, BID
  10. SIMVASTATIN. [Concomitant]
     Active Substance: SIMVASTATIN

REACTIONS (2)
  - Insomnia [Unknown]
  - Bronchitis [Unknown]
